FAERS Safety Report 16387722 (Version 1)
Quarter: 2019Q2

REPORT INFORMATION
  Report Type: Spontaneous
  Country: US (occurrence: US)
  Receive Date: 20190604
  Receipt Date: 20190604
  Transmission Date: 20190711
  Serious: No
  Sender: FDA-Public Use
  Company Number: US-DRREDDYS-USA/USA/19/0110659

PATIENT
  Sex: Male

DRUGS (6)
  1. ZIPRASIDONE CAPSULES 20 MG, 40 MG, 60 MG, 80 MG [Suspect]
     Active Substance: ZIPRASIDONE
     Indication: HALLUCINATION
     Route: 048
  2. ZIPRASIDONE CAPSULES 20 MG, 40 MG, 60 MG, 80 MG [Suspect]
     Active Substance: ZIPRASIDONE
     Indication: HALLUCINATION, AUDITORY
     Route: 048
  3. GABAPENTIN. [Concomitant]
     Active Substance: GABAPENTIN
     Indication: DEEP VEIN THROMBOSIS
     Dosage: STARTED ABOUT 3 MONTHS AGO, MORNING AND NIGHT
     Route: 048
  4. RISPERIDONE. [Concomitant]
     Active Substance: RISPERIDONE
     Indication: SCHIZOPHRENIA
     Route: 048
  5. RISPERIDONE. [Concomitant]
     Active Substance: RISPERIDONE
     Indication: DEPRESSION
  6. ZIPRASIDONE CAPSULES 20 MG, 40 MG, 60 MG, 80 MG [Suspect]
     Active Substance: ZIPRASIDONE
     Indication: SUICIDAL IDEATION
     Route: 048

REACTIONS (3)
  - Product quality issue [Unknown]
  - Drug ineffective [Recovered/Resolved]
  - Expired product administered [Unknown]
